FAERS Safety Report 11914733 (Version 1)
Quarter: 2016Q1

REPORT INFORMATION
  Report Type: Spontaneous
  Country: CA (occurrence: CA)
  Receive Date: 20160113
  Receipt Date: 20160113
  Transmission Date: 20160526
  Serious: Yes (Hospitalization, Other)
  Sender: FDA-Public Use
  Company Number: CA-TEVA-624157USA

PATIENT
  Age: 7 Year
  Sex: Male

DRUGS (5)
  1. CARBOPLATIN. [Concomitant]
     Active Substance: CARBOPLATIN
     Dosage: 360MG
     Route: 042
  2. TEVA-ETOPOSIDE [Suspect]
     Active Substance: ETOPOSIDE
     Dosage: STRENGHT 20MG/ML; DILUTED TO 0.4MG/ML, RECEIVED ONLY 5ML OF THE SOLUTION
     Route: 042
     Dates: start: 20151230, end: 20151230
  3. VINCRISTINE [Concomitant]
     Active Substance: VINCRISTINE
     Dosage: 1.4MG
     Route: 042
  4. TEVA-ETOPOSIDE [Suspect]
     Active Substance: ETOPOSIDE
  5. TEVA-ETOPOSIDE [Suspect]
     Active Substance: ETOPOSIDE
     Indication: BRAIN NEOPLASM
     Route: 042
     Dates: start: 20151229, end: 20151229

REACTIONS (5)
  - Wheezing [Recovered/Resolved]
  - Erythema [Recovered/Resolved]
  - Lip swelling [Recovered/Resolved]
  - Anaphylactic reaction [Recovered/Resolved]
  - Rash [Recovered/Resolved]

NARRATIVE: CASE EVENT DATE: 20151230
